FAERS Safety Report 9721482 (Version 2)
Quarter: 2013Q4

REPORT INFORMATION
  Report Type: Spontaneous
  Country: JP (occurrence: JP)
  Receive Date: 20131130
  Receipt Date: 20131216
  Transmission Date: 20140711
  Serious: Yes (Hospitalization)
  Sender: FDA-Public Use
  Company Number: JP-AMGEN-JPNSP2013084143

PATIENT
  Age: 49 Year
  Sex: Female
  Weight: 39 kg

DRUGS (12)
  1. RANMARK [Suspect]
     Indication: RENAL CANCER
     Dosage: 120 MG, UNK
     Route: 058
     Dates: start: 20130806, end: 20131029
  2. ASPARA-CA [Concomitant]
     Dosage: 600 MG, QD
     Route: 048
     Dates: start: 20130806, end: 20131121
  3. ALFAROL [Concomitant]
     Dosage: 1 MUG, QD
     Route: 048
     Dates: start: 20130806
  4. THYRADIN [Concomitant]
     Dosage: 400 MUG, BID
     Route: 048
  5. INLYTA [Concomitant]
     Dosage: 10 MG, BID
     Route: 048
  6. PARIET [Concomitant]
     Dosage: 10 MG, QD
     Route: 048
  7. ALDACTONE                          /00006201/ [Concomitant]
     Dosage: 100 MG, BID
     Route: 048
  8. LASIX                              /00032601/ [Concomitant]
     Dosage: 40 MG, BID
     Route: 048
  9. PLETAAL [Concomitant]
     Dosage: 100 MG, QD
     Route: 048
  10. RINDERON                           /00008501/ [Concomitant]
     Dosage: 2 MG, BID
     Route: 048
  11. MAGLAX [Concomitant]
     Dosage: 660 MG, BID
     Route: 048
  12. SALAGEN [Concomitant]
     Dosage: 15 MG, TID
     Route: 048

REACTIONS (1)
  - Hypocalcaemia [Recovering/Resolving]
